FAERS Safety Report 9520728 (Version 1)
Quarter: 2013Q3

REPORT INFORMATION
  Report Type: Spontaneous
  Country: US (occurrence: US)
  Receive Date: 20130913
  Receipt Date: 20130913
  Transmission Date: 20140515
  Serious: Yes (Other)
  Sender: FDA-Public Use
  Company Number: US-JNJCP-30000178964

PATIENT
  Sex: Female

DRUGS (5)
  1. NEUTROGENA OIL FREE ACNE WASH PINK GRAPEFRUIT FACIAL CLEANSER [Suspect]
     Indication: ACNE
     Route: 061
  2. BENADRYL [Suspect]
     Indication: SWELLING FACE
     Route: 048
  3. NO DRUG NAME [Concomitant]
  4. NO DRUG NAME [Concomitant]
  5. NO DRUG NAME [Concomitant]

REACTIONS (3)
  - Application site swelling [Unknown]
  - Acne cosmetica [Unknown]
  - Loss of consciousness [Unknown]
